FAERS Safety Report 23161870 (Version 1)
Quarter: 2023Q4

REPORT INFORMATION
  Report Type: Spontaneous
  Country: GB (occurrence: GB)
  Receive Date: 20231109
  Receipt Date: 20231109
  Transmission Date: 20240110
  Serious: Yes (Hospitalization, Other)
  Sender: FDA-Public Use
  Company Number: GB-STRIDES ARCOLAB LIMITED-2023SP016658

PATIENT
  Age: 12 Year
  Sex: Female

DRUGS (12)
  1. ETOPOSIDE [Suspect]
     Active Substance: ETOPOSIDE
     Indication: T-cell type acute leukaemia
     Dosage: 60 MILLIGRAM/KILOGRAM
     Route: 065
  2. CYCLOSPORINE [Suspect]
     Active Substance: CYCLOSPORINE
     Indication: Prophylaxis against graft versus host disease
     Dosage: UNK
     Route: 065
  3. METHOTREXATE [Suspect]
     Active Substance: METHOTREXATE
     Indication: Prophylaxis against graft versus host disease
     Dosage: UNK
     Route: 065
  4. FLUDARABINE [Suspect]
     Active Substance: FLUDARABINE PHOSPHATE
     Indication: T-cell type acute leukaemia
     Dosage: 150 MILLIGRAM/SQ. METER
     Route: 065
  5. FLUDARABINE [Suspect]
     Active Substance: FLUDARABINE PHOSPHATE
     Indication: Lymphodepletion
     Dosage: 160 MILLIGRAM/SQ. METER
     Route: 065
  6. CYCLOPHOSPHAMIDE [Suspect]
     Active Substance: CYCLOPHOSPHAMIDE
     Indication: T-cell type acute leukaemia
     Dosage: 120 MILLIGRAM/KILOGRAM
     Route: 065
  7. CYCLOPHOSPHAMIDE [Suspect]
     Active Substance: CYCLOPHOSPHAMIDE
     Indication: Lymphodepletion
     Dosage: 120 MILLIGRAM/KILOGRAM
     Route: 065
  8. ALEMTUZUMAB [Suspect]
     Active Substance: ALEMTUZUMAB
     Indication: T-cell type acute leukaemia
     Dosage: 1 MILLIGRAM/KILOGRAM
     Route: 065
  9. ALEMTUZUMAB [Suspect]
     Active Substance: ALEMTUZUMAB
     Indication: Lymphodepletion
  10. THYMOGLOBULIN [Suspect]
     Active Substance: LAPINE T-LYMPHOCYTE IMMUNE GLOBULIN
     Indication: T-cell type acute leukaemia
     Dosage: 7.5 MILLIGRAM/KILOGRAM
     Route: 065
  11. THYMOGLOBULIN [Suspect]
     Active Substance: LAPINE T-LYMPHOCYTE IMMUNE GLOBULIN
     Dosage: 15 MILLIGRAM/KILOGRAM
     Route: 065
  12. NELARABINE [Suspect]
     Active Substance: NELARABINE
     Indication: T-cell type acute leukaemia
     Dosage: UNK
     Route: 065

REACTIONS (12)
  - Pericardial effusion [Unknown]
  - Mucosal inflammation [Unknown]
  - Cytomegalovirus infection reactivation [Recovered/Resolved]
  - Escherichia bacteraemia [Recovered/Resolved]
  - Escherichia sepsis [Recovered/Resolved]
  - Viral haemorrhagic cystitis [Unknown]
  - BK virus infection [Unknown]
  - Bacteraemia [Unknown]
  - Epstein-Barr viraemia [Unknown]
  - Graft versus host disease in gastrointestinal tract [Unknown]
  - Graft versus host disease in skin [Unknown]
  - Drug ineffective for unapproved indication [Unknown]

NARRATIVE: CASE EVENT DATE: 20220503
